FAERS Safety Report 9608482 (Version 1)
Quarter: 2013Q4

REPORT INFORMATION
  Report Type: Report from Study
  Country: US (occurrence: US)
  Receive Date: 20131009
  Receipt Date: 20131009
  Transmission Date: 20140711
  Serious: Yes (Other)
  Sender: FDA-Public Use
  Company Number: US-B.I. PHARMACEUTICALS,INC./RIDGEFIELD-2013-BI-31721GD

PATIENT
  Age: 56 Year
  Sex: Male

DRUGS (5)
  1. PRADAXA [Suspect]
     Dosage: 300 MG
  2. ZOCOR [Suspect]
     Dosage: 40 MG
  3. METFORMIN [Suspect]
     Dosage: 1000 MG
  4. ZESTRIL [Suspect]
     Dosage: 10 MG
  5. CENTRUM [Suspect]
     Dosage: 1 ANZ
     Route: 048

REACTIONS (1)
  - Ischaemic stroke [Unknown]
